FAERS Safety Report 19882886 (Version 1)
Quarter: 2021Q3

REPORT INFORMATION
  Report Type: Report from Study
  Country: None (occurrence: CO)
  Receive Date: 20210924
  Receipt Date: 20210924
  Transmission Date: 20211014
  Serious: Yes (Hospitalization)
  Sender: FDA-Public Use
  Company Number: CO-ABBVIE-21K-036-3990549-00

PATIENT
  Sex: Male
  Weight: 80 kg

DRUGS (2)
  1. HUMIRA [Suspect]
     Active Substance: ADALIMUMAB
     Route: 058
     Dates: start: 2021
  2. HUMIRA [Suspect]
     Active Substance: ADALIMUMAB
     Indication: CROHN^S DISEASE
     Route: 058
     Dates: start: 20200828, end: 2021

REACTIONS (7)
  - Abdominal pain [Recovered/Resolved]
  - Drug ineffective [Recovered/Resolved]
  - Vein disorder [Recovered/Resolved]
  - Diarrhoea [Recovered/Resolved]
  - Depression [Recovered/Resolved]
  - Colonic fistula [Recovered/Resolved]
  - Venous injury [Recovered/Resolved]

NARRATIVE: CASE EVENT DATE: 2021
